FAERS Safety Report 15070014 (Version 1)
Quarter: 2018Q2

REPORT INFORMATION
  Report Type: Spontaneous
  Country: JP (occurrence: JP)
  Receive Date: 20180626
  Receipt Date: 20180626
  Transmission Date: 20180711
  Serious: Yes (Death, Other)
  Sender: FDA-Public Use
  Company Number: JP-MYLANLABS-2018M1046074

PATIENT
  Age: 55 Year
  Sex: Female

DRUGS (1)
  1. TAMOXIFEN TAB [Suspect]
     Active Substance: TAMOXIFEN CITRATE
     Indication: INVASIVE BREAST CARCINOMA
     Route: 048

REACTIONS (11)
  - Hepatic steatosis [Unknown]
  - Large intestinal stenosis [Fatal]
  - Genital haemorrhage [Unknown]
  - Polycystic ovaries [Unknown]
  - Endometriosis [Fatal]
  - Uterine leiomyoma [Unknown]
  - Colitis [Fatal]
  - Fat tissue increased [Unknown]
  - Large intestinal obstruction [Fatal]
  - Large intestine perforation [Fatal]
  - Uterine polyp [Unknown]
